FAERS Safety Report 7131611-0 (Version None)
Quarter: 2010Q4

REPORT INFORMATION
  Report Type: 
  Country: None (occurrence: None)
  Receive Date: 20101201
  Receipt Date: 20101119
  Transmission Date: 20110411
  Serious: Yes (Hospitalization)
  Sender: FDA-Public Use
  Company Number: US-ELI_LILLY_AND_COMPANY-US201009005301

PATIENT
  Sex: Male

DRUGS (2)
  1. HUMALOG MIX 75/25 [Suspect]
     Indication: DIABETES MELLITUS
     Dosage: 50 U, EACH MORNING
     Dates: start: 20100429, end: 20100601
  2. HUMALOG MIX 75/25 [Suspect]
     Dosage: 50 U, EACH MORNING
     Dates: start: 20100429, end: 20100601

REACTIONS (1)
  - MULTIPLE MYELOMA [None]
